FAERS Safety Report 12332503 (Version 1)
Quarter: 2016Q2

REPORT INFORMATION
  Report Type: Spontaneous
  Country: US (occurrence: US)
  Receive Date: 20160504
  Receipt Date: 20160504
  Transmission Date: 20160815
  Serious: No
  Sender: FDA-Public Use
  Company Number: US-ROCHE-1640855

PATIENT
  Sex: Female
  Weight: 83.99 kg

DRUGS (1)
  1. ESBRIET [Suspect]
     Active Substance: PIRFENIDONE
     Indication: IDIOPATHIC PULMONARY FIBROSIS
     Dosage: 3 CAPSULES
     Route: 048
     Dates: start: 20150930

REACTIONS (12)
  - Salivary hypersecretion [Unknown]
  - Product container issue [Unknown]
  - Pneumonia [Unknown]
  - Cough [Unknown]
  - Contusion [Unknown]
  - Pruritus [Unknown]
  - Productive cough [Unknown]
  - Chest pain [Unknown]
  - Headache [Unknown]
  - Dyspepsia [Unknown]
  - Rash [Unknown]
  - Diarrhoea [Unknown]
